FAERS Safety Report 6057527-9 (Version None)
Quarter: 2009Q1

REPORT INFORMATION
  Report Type: 
  Country: None (occurrence: None)
  Receive Date: 20090129
  Receipt Date: 20090119
  Transmission Date: 20090719
  Serious: Yes (Hospitalization)
  Sender: FDA-Public Use
  Company Number: BR-ROCHE-609454

PATIENT
  Sex: Male
  Weight: 57 kg

DRUGS (2)
  1. RIVOTRIL [Suspect]
     Indication: DEPRESSION
     Route: 048
     Dates: start: 19890101
  2. PROLOPA [Suspect]
     Indication: HEADACHE
     Dosage: DOSE REPORTED AS: 1/2 CAPSULE THREE TIMES DAILY.
     Route: 048
     Dates: start: 20090114, end: 20090118

REACTIONS (2)
  - HEADACHE [None]
  - LUNG NEOPLASM MALIGNANT [None]
